FAERS Safety Report 15724402 (Version 1)
Quarter: 2018Q4

REPORT INFORMATION
  Report Type: Report from Study
  Country: US (occurrence: US)
  Receive Date: 20181214
  Receipt Date: 20181214
  Transmission Date: 20190205
  Serious: Yes (Death, Life-Threatening, Hospitalization, Other)
  Sender: FDA-Public Use
  Company Number: US-ASTRAZENECA-2018SF24655

PATIENT
  Age: 31292 Day
  Sex: Female
  Weight: 85.9 kg

DRUGS (16)
  1. NYSTATIN. [Concomitant]
     Active Substance: NYSTATIN
     Dosage: 100,000 UNITS/ML 10 ML BID
     Route: 048
     Dates: start: 20181025
  2. ATOVAQUONE. [Concomitant]
     Active Substance: ATOVAQUONE
     Dosage: 750 MG/5 ML 10 ML EVERY 24HRS
     Route: 048
     Dates: start: 20180914
  3. SPIRONOLACTONE. [Concomitant]
     Active Substance: SPIRONOLACTONE
     Route: 048
     Dates: start: 20181120
  4. TAGRISSO [Suspect]
     Active Substance: OSIMERTINIB
     Indication: NON-SMALL CELL LUNG CANCER
     Route: 048
     Dates: start: 20181119, end: 20181127
  5. SYNTHROID [Concomitant]
     Active Substance: LEVOTHYROXINE SODIUM
     Route: 048
     Dates: start: 2008
  6. CARDIZEM CD [Concomitant]
     Active Substance: DILTIAZEM HYDROCHLORIDE
     Dosage: 240 MG EXTENDED RELEASE 2 CAP EVERY 24 HOURS
     Route: 048
     Dates: start: 20181023
  7. GABAPENTIN. [Concomitant]
     Active Substance: GABAPENTIN
     Dosage: 100 MG 1 CAP(S) EVERY 8 HOURS
     Route: 048
     Dates: start: 20180727
  8. OMEPRAZOLE. [Concomitant]
     Active Substance: OMEPRAZOLE
     Dosage: 40 MG ORALLY ONCE A DAY
     Route: 048
     Dates: start: 2008
  9. PREDNISONE. [Concomitant]
     Active Substance: PREDNISONE
     Route: 048
     Dates: start: 20180914
  10. DIGITEK [Concomitant]
     Active Substance: DIGOXIN
     Dosage: 250 MCG 1 TAB ONCE A DAY
     Route: 048
     Dates: start: 20181120
  11. STEREOTACTIC BODY RADIATION THERAPY [Suspect]
     Active Substance: RADIATION THERAPY
     Indication: NON-SMALL CELL LUNG CANCER
     Dosage: 8 CGY X 3 DOSES FOR A TOTAL OF 24CGY),
     Route: 065
     Dates: start: 20180907
  12. TAGRISSO [Suspect]
     Active Substance: OSIMERTINIB
     Indication: NON-SMALL CELL LUNG CANCER
     Route: 048
     Dates: start: 20180619, end: 20180910
  13. ANORO ELLIPTA [Concomitant]
     Active Substance: UMECLIDINIUM BROMIDE\VILANTEROL TRIFENATATE
     Dosage: 62.5 MCG-25 MCG/INH INHALATION POWDER 1 PUFF(S) INHALED ONCE A DAY
     Route: 055
     Dates: start: 20180911
  14. APIXABAN [Concomitant]
     Active Substance: APIXABAN
     Dosage: 5 MG TABLET 1 TAB(S) EVERY 12 HOURS
     Route: 048
     Dates: start: 20181025
  15. DURVALUMAB. [Suspect]
     Active Substance: DURVALUMAB
     Indication: NON-SMALL CELL LUNG CANCER
     Route: 042
     Dates: start: 20180424, end: 20180515
  16. METOPROLOL SUCCINATE. [Concomitant]
     Active Substance: METOPROLOL SUCCINATE
     Route: 048
     Dates: start: 20181120

REACTIONS (1)
  - Respiratory failure [Fatal]

NARRATIVE: CASE EVENT DATE: 20181203
